FAERS Safety Report 9782518 (Version 1)
Quarter: 2013Q4

REPORT INFORMATION
  Report Type: Spontaneous
  Country: US (occurrence: None)
  Receive Date: 20131223
  Receipt Date: 20131223
  Transmission Date: 20140711
  Serious: Yes (Hospitalization)
  Sender: FDA-Public Use
  Company Number: None

PATIENT
  Age: 76 Year
  Sex: Male
  Weight: 54.4 kg

DRUGS (1)
  1. PHENYTOIN [Suspect]
     Indication: CONVULSION
     Dosage: 1 TAB
     Route: 048
     Dates: start: 20081208, end: 20101229

REACTIONS (3)
  - Fall [None]
  - Vision blurred [None]
  - Anticonvulsant drug level above therapeutic [None]
